FAERS Safety Report 7231503-2 (Version None)
Quarter: 2011Q1

REPORT INFORMATION
  Report Type: 
  Country: None (occurrence: None)
  Receive Date: 20110118
  Receipt Date: 20110103
  Transmission Date: 20110831
  Serious: Yes (Hospitalization, Other)
  Sender: FDA-Public Use
  Company Number: US-ACTELION-A-NJ2010-38162

PATIENT

DRUGS (14)
  1. SPIRONOLACTONE [Concomitant]
  2. BOSENTAN TABLET 125 MG US [Suspect]
     Indication: PULMONARY ARTERIAL HYPERTENSION
     Dosage: 125 MG, BID
     Route: 048
     Dates: start: 20060901, end: 20100712
  3. REVATIO [Concomitant]
  4. ASCORBIC ACID [Concomitant]
  5. BOSENTAN TABLET 125 MG US [Suspect]
     Dosage: 62.5 MG, BID
     Route: 048
  6. BOSENTAN TABLET 125 MG US [Suspect]
     Dosage: 62.5 MG, BID
     Route: 048
     Dates: start: 20060801, end: 20060901
  7. WARFARIN SODIUM [Suspect]
  8. ACETAMINOPHEN [Concomitant]
  9. DIGOXIN [Concomitant]
  10. TREPROSTINIL [Suspect]
  11. TIOTROPIUM [Concomitant]
  12. FLUTICASONE PROPIONATE [Concomitant]
  13. FUROSEMIDE [Concomitant]
  14. OXYMETAZOLINE HCL [Concomitant]

REACTIONS (17)
  - FEELING ABNORMAL [None]
  - HYPOTENSION [None]
  - ANAEMIA [None]
  - HAEMOGLOBIN DECREASED [None]
  - FLUID OVERLOAD [None]
  - INTERNATIONAL NORMALISED RATIO INCREASED [None]
  - HYPERHIDROSIS [None]
  - ABDOMINAL DISTENSION [None]
  - ASPARTATE AMINOTRANSFERASE INCREASED [None]
  - ALANINE AMINOTRANSFERASE INCREASED [None]
  - DYSPNOEA [None]
  - SYNCOPE [None]
  - HAEMATOCRIT DECREASED [None]
  - TRANSFUSION [None]
  - LIVER FUNCTION TEST ABNORMAL [None]
  - BLOOD ALKALINE PHOSPHATASE INCREASED [None]
  - OCCULT BLOOD POSITIVE [None]
